FAERS Safety Report 5197547-X (Version None)
Quarter: 2006Q4

REPORT INFORMATION
  Report Type: 
  Country: None (occurrence: None)
  Receive Date: 20061228
  Receipt Date: 20061212
  Transmission Date: 20070319
  Serious: Yes (Hospitalization)
  Sender: FDA-Public Use
  Company Number: PHNU2006DE04244

PATIENT
  Sex: Male

DRUGS (1)
  1. LAMISIL [Suspect]
     Dosage: 1 DF, ONCE, SINGLE, TOPICAL
     Route: 061

REACTIONS (3)
  - BLISTER [None]
  - HELICOBACTER INFECTION [None]
  - OEDEMA PERIPHERAL [None]
